FAERS Safety Report 23026964 (Version 1)
Quarter: 2023Q4

REPORT INFORMATION
  Report Type: Report from Study
  Country: IT (occurrence: IT)
  Receive Date: 20231004
  Receipt Date: 20231004
  Transmission Date: 20240109
  Serious: Yes (Other)
  Sender: FDA-Public Use
  Company Number: None

PATIENT
  Age: 75 Year
  Sex: Female

DRUGS (4)
  1. FLUOROURACIL [Suspect]
     Active Substance: FLUOROURACIL
     Indication: Colon neoplasm
  2. LEVOLEUCOVORIN CALCIUM [Concomitant]
     Active Substance: LEVOLEUCOVORIN CALCIUM
  3. IRINOTECAN [Concomitant]
     Active Substance: IRINOTECAN
  4. BEVACIZUMAB [Concomitant]
     Active Substance: BEVACIZUMAB

REACTIONS (1)
  - Bradycardia [Unknown]

NARRATIVE: CASE EVENT DATE: 20230809
